FAERS Safety Report 4663959-3 (Version None)
Quarter: 2005Q2

REPORT INFORMATION
  Report Type: 
  Country: None (occurrence: None)
  Receive Date: 20050429
  Receipt Date: 20040406
  Transmission Date: 20051028
  Serious: Yes (Hospitalization)
  Sender: FDA-Public Use
  Company Number: US-JNJFOC-20040201570

PATIENT
  Age: 83 Year
  Sex: Male

DRUGS (1)
  1. REMINYL [Suspect]
     Dosage: SEE IMAGE
     Route: 048

REACTIONS (2)
  - CONVULSION [None]
  - MUSCLE SPASMS [None]
